FAERS Safety Report 18182294 (Version 1)
Quarter: 2020Q3

REPORT INFORMATION
  Report Type: Spontaneous
  Country: CA (occurrence: CA)
  Receive Date: 20200821
  Receipt Date: 20200821
  Transmission Date: 20201103
  Serious: Yes (Death, Hospitalization)
  Sender: FDA-Public Use
  Company Number: CA-TEVA-2020-CA-1815947

PATIENT
  Age: 80 Year
  Sex: Female

DRUGS (14)
  1. METOCLOPRAMIDE. [Concomitant]
     Active Substance: METOCLOPRAMIDE
  2. ALFACALCIDOL [Concomitant]
     Active Substance: ALFACALCIDOL
  3. ALLOPURINOL. [Concomitant]
     Active Substance: ALLOPURINOL
  4. RENA?VITE [Concomitant]
     Active Substance: ASCORBIC ACID\BIOTIN\CALCIUM PANTOTHENATE\CYANOCOBALAMIN\FOLIC ACID\NIACINAMIDE\PYRIDOXINE HYDROCHLORIDE\RIBOFLAVIN\THIAMINE MONONITRATE
  5. GABAPENTIN. [Suspect]
     Active Substance: GABAPENTIN
     Dosage: 100 MILLIGRAM DAILY;
     Route: 048
  6. ARANESP [Concomitant]
     Active Substance: DARBEPOETIN ALFA
  7. INSULIN GLARGINE [Concomitant]
     Active Substance: INSULIN GLARGINE
  8. SYNTHROID [Concomitant]
     Active Substance: LEVOTHYROXINE SODIUM
  9. METOPROLOL. [Concomitant]
     Active Substance: METOPROLOL
  10. PANTOPRAZOLE [Concomitant]
     Active Substance: PANTOPRAZOLE
  11. VITAMIN B12 [Concomitant]
     Active Substance: CYANOCOBALAMIN
  12. DICLOFENAC [Concomitant]
     Active Substance: DICLOFENAC
  13. DOCUSATE [Concomitant]
     Active Substance: DOCUSATE
  14. HYDROMORPH CONTINCONTROLLED RELEASE CAP ? 3MG [Suspect]
     Active Substance: HYDROMORPHONE
     Dosage: 9 MILLIGRAM DAILY;
     Route: 048

REACTIONS (2)
  - Confusional state [Fatal]
  - Speech disorder [Fatal]
